FAERS Safety Report 7076841-1 (Version None)
Quarter: 2010Q4

REPORT INFORMATION
  Report Type: 
  Country: None (occurrence: None)
  Receive Date: 20101101
  Receipt Date: 20101021
  Transmission Date: 20110411
  Serious: Yes (Hospitalization)
  Sender: FDA-Public Use
  Company Number: US-ENDO PHARMACEUTICALS INC.-PERC20100131

PATIENT
  Age: 59 Year
  Sex: Male
  Weight: 99.426 kg

DRUGS (2)
  1. PERCOCET [Suspect]
     Indication: PROCEDURAL PAIN
     Dosage: 10/325 MG
     Route: 048
     Dates: start: 20101015, end: 20101020
  2. CEPHALEXIN [Concomitant]
     Route: 065

REACTIONS (5)
  - ANXIETY [None]
  - HYPERHIDROSIS [None]
  - HYPERTENSION [None]
  - HYPOAESTHESIA [None]
  - ILL-DEFINED DISORDER [None]
